FAERS Safety Report 22377689 (Version 3)
Quarter: 2023Q4

REPORT INFORMATION
  Report Type: Spontaneous
  Country: SK (occurrence: SK)
  Receive Date: 20230529
  Receipt Date: 20231228
  Transmission Date: 20240109
  Serious: Yes (Hospitalization, Other)
  Sender: FDA-Public Use
  Company Number: SK-JNJFOC-20230531275

PATIENT
  Age: 78 Year
  Sex: Female

DRUGS (8)
  1. MELPHALAN [Suspect]
     Active Substance: MELPHALAN
     Indication: Plasma cell myeloma
     Dosage: 9 MILLIGRAM/SQ. METER, ONCE A DAY CYCLE 2-9 (6 WEEKS)- 1XDENNE (1-4)
     Route: 048
  2. MELPHALAN [Suspect]
     Active Substance: MELPHALAN
     Dosage: 9 MILLIGRAM/SQ. METER, ONCE A DAY CYCLE 1 (6 WEEKS)- 1XDENNE (1-4)
     Route: 048
  3. DARZALEX [Suspect]
     Active Substance: DARATUMUMAB
     Indication: Plasma cell myeloma
     Dosage: 1800 MILLIGRAM, 3 WEEK CYCLE 2-9 (6 WEEKS)
     Route: 058
     Dates: start: 20230509
  4. DARZALEX [Suspect]
     Active Substance: DARATUMUMAB
     Dosage: 1800 MILLIGRAM, 3 WEEK CYCLE 1 (6 WEEKS)
     Route: 058
     Dates: start: 20230509
  5. PREDNISONE [Suspect]
     Active Substance: PREDNISONE
     Indication: Plasma cell myeloma
     Dosage: 60 MILLIGRAM/SQ. METER, ONCE A DAY, CYCLE 1 (6 WEEKS)
     Route: 048
  6. PREDNISONE [Suspect]
     Active Substance: PREDNISONE
     Dosage: 60 MILLIGRAM/SQ. METER, ONCE A DAY, CYCLE 2-9 (6 WEEKS)
     Route: 048
  7. VELCADE [Suspect]
     Active Substance: BORTEZOMIB
     Indication: Plasma cell myeloma
     Dosage: 1.3 MILLIGRAM/SQ. METER,0.5 WEEK (2X PER WEEK (1, 2, 4, 5))
     Route: 042
  8. VELCADE [Suspect]
     Active Substance: BORTEZOMIB
     Dosage: 1.3 MILLIGRAM/SQ. METER,0.5 WEEK (2X PER WEEK (1, 2, 4, 5))
     Route: 042

REACTIONS (5)
  - Anaphylactic reaction [Unknown]
  - Adverse reaction [Unknown]
  - Atrial flutter [Unknown]
  - Leukopenia [Unknown]
  - Infusion related reaction [Unknown]

NARRATIVE: CASE EVENT DATE: 20230509
